FAERS Safety Report 9417749 (Version 3)
Quarter: 2014Q4

REPORT INFORMATION
  Report Type: Spontaneous
  Country: US (occurrence: US)
  Receive Date: 20130724
  Receipt Date: 20141201
  Transmission Date: 20150529
  Serious: Yes (Hospitalization, Other)
  Sender: FDA-Public Use
  Company Number: US-GLAXOSMITHKLINE-A1033595A

PATIENT
  Age: 53 Year
  Sex: Female

DRUGS (7)
  1. CARVEDILOL. [Suspect]
     Active Substance: CARVEDILOL
     Indication: RESTRICTIVE CARDIOMYOPATHY
     Dosage: 3.125 MG, BID
     Route: 048
     Dates: start: 2007
  2. CARVEDILOL. [Suspect]
     Active Substance: CARVEDILOL
     Indication: CARDIAC FAILURE
  3. PEPCID AC [Concomitant]
     Active Substance: FAMOTIDINE
  4. COREG CR [Suspect]
     Active Substance: CARVEDILOL PHOSPHATE
     Indication: RESTRICTIVE CARDIOMYOPATHY
     Dosage: 20 MG, QD
     Route: 048
     Dates: start: 2007
  5. COREG CR [Suspect]
     Active Substance: CARVEDILOL PHOSPHATE
     Indication: CARDIAC FAILURE
  6. COREG CR [Suspect]
     Active Substance: CARVEDILOL PHOSPHATE
     Indication: HAEMOCHROMATOSIS
  7. HEPARIN [Concomitant]
     Active Substance: HEPARIN SODIUM

REACTIONS (27)
  - Fatigue [Recovered/Resolved]
  - Depression [Unknown]
  - Loss of consciousness [Recovered/Resolved]
  - Vitreous detachment [Unknown]
  - Dyspnoea [Recovered/Resolved]
  - Suffocation feeling [Recovered/Resolved]
  - Drug ineffective [Recovered/Resolved]
  - Mental impairment [Recovered/Resolved]
  - Fall [Recovered/Resolved]
  - Adverse event [Recovered/Resolved]
  - Brain operation [Unknown]
  - Brain neoplasm [Recovered/Resolved]
  - Craniotomy [Unknown]
  - Vitreous haemorrhage [Unknown]
  - Pain in jaw [Recovered/Resolved]
  - Therapeutic response decreased [Unknown]
  - Feeling abnormal [Unknown]
  - Neurosurgery [Unknown]
  - Meningioma [Unknown]
  - Hypotension [Recovered/Resolved]
  - Dizziness [Recovered/Resolved]
  - Drug administration error [Unknown]
  - Angina pectoris [Recovered/Resolved]
  - Hospitalisation [Unknown]
  - Retinal tear [Unknown]
  - Nightmare [Unknown]
  - Surgery [Unknown]

NARRATIVE: CASE EVENT DATE: 2007
